FAERS Safety Report 6870590 (Version 2)
Quarter: 2017Q1

REPORT INFORMATION
  Report Type: Spontaneous
  Country: JP (occurrence: JP)
  Receive Date: 20081231
  Receipt Date: 20170207
  Transmission Date: 20170429
  Serious: Yes (Death, Hospitalization, Other)
  Sender: FDA-Public Use
  Company Number: JP-BRISTOL-MYERS SQUIBB COMPANY-14456222

PATIENT
  Age: 78 Year
  Sex: Male

DRUGS (2)
  1. TAXOL [Suspect]
     Active Substance: PACLITAXEL
     Indication: LUNG NEOPLASM MALIGNANT
     Dosage: UNK
     Route: 041
  2. CARBOMERCK [Suspect]
     Active Substance: CARBOPLATIN
     Indication: LUNG NEOPLASM MALIGNANT
     Dosage: UNK
     Route: 041

REACTIONS (10)
  - Circulatory collapse [Fatal]
  - Fungaemia [Unknown]
  - Pseudomembranous colitis [Unknown]
  - Cholecystitis acute [Unknown]
  - Peritonitis [Unknown]
  - Interstitial lung disease [Recovering/Resolving]
  - Gastrointestinal perforation [Unknown]
  - Renal failure [Recovering/Resolving]
  - Henoch-Schonlein purpura [Recovering/Resolving]
  - Malignant neoplasm progression [Unknown]
